FAERS Safety Report 13361831 (Version 1)
Quarter: 2017Q1

REPORT INFORMATION
  Report Type: Spontaneous
  Country: US (occurrence: US)
  Receive Date: 20170321
  Receipt Date: 20170321
  Transmission Date: 20170429
  Serious: Yes (Other)
  Sender: FDA-Public Use
  Company Number: None

PATIENT
  Age: 84 Year
  Sex: Male

DRUGS (1)
  1. REVLIMID [Suspect]
     Active Substance: LENALIDOMIDE
     Indication: MYELODYSPLASTIC SYNDROME
     Dosage: DATES OF USE - 1 CYCLE?FREQUENCY - DAILY X21D/28D
     Route: 048

REACTIONS (2)
  - Epistaxis [None]
  - Drug intolerance [None]

NARRATIVE: CASE EVENT DATE: 20131220
